FAERS Safety Report 15283423 (Version 1)
Quarter: 2018Q3

REPORT INFORMATION
  Report Type: Spontaneous
  Country: US (occurrence: US)
  Receive Date: 20180816
  Receipt Date: 20180816
  Transmission Date: 20181010
  Serious: No
  Sender: FDA-Public Use
  Company Number: US-PFIZER INC-2016130904

PATIENT
  Age: 64 Year
  Sex: Male
  Weight: 89.34 kg

DRUGS (11)
  1. NIZORAL [Concomitant]
     Active Substance: KETOCONAZOLE
     Dosage: 1 DF, UNK (3 TIMES WEEKLY)
  2. ALBUTEROL SULFATE. [Concomitant]
     Active Substance: ALBUTEROL SULFATE
     Indication: CHRONIC OBSTRUCTIVE PULMONARY DISEASE
     Dosage: 1 DF, AS NEEDED (2.5 MG/3ML)0.083% (1 NEBULIZED SOLN FIVE TIMES DAILY, AS NEEDED )
  3. ALBUTEROL SULFATE. [Concomitant]
     Active Substance: ALBUTEROL SULFATE
     Indication: DYSPNOEA
  4. HYDROCODONE [Concomitant]
     Active Substance: HYDROCODONE
     Indication: NEURALGIA
     Dosage: UNK, 3X/DAY (10/325MG TAKES TWO TABLETS, 3 TIMES DAY BY A MOUTH )
     Route: 048
  5. CYCLOBENZAPRIN HCL [Concomitant]
     Active Substance: CYCLOBENZAPRINE HYDROCHLORIDE
     Indication: BACK PAIN
     Dosage: 10 MG, 1X/DAY (HS)
  6. LYRICA [Suspect]
     Active Substance: PREGABALIN
     Dosage: UNK
     Dates: end: 20180724
  7. TRIAMCINOLONE ACETONIDE. [Concomitant]
     Active Substance: TRIAMCINOLONE ACETONIDE
     Indication: SEBORRHOEIC DERMATITIS
     Dosage: 1 DF, 3X/DAY (80  GRAM, 30 DAYS )
  8. LYRICA [Suspect]
     Active Substance: PREGABALIN
     Indication: NERVE INJURY
     Dosage: 150 MG, 3X/DAY
     Route: 048
     Dates: start: 2007
  9. LYRICA [Suspect]
     Active Substance: PREGABALIN
     Indication: BACK INJURY
     Dosage: 150 MG, 1X/DAY
     Dates: start: 20180713
  10. KETOCONAZOLE. [Concomitant]
     Active Substance: KETOCONAZOLE
     Dosage: UNK (1 CREAM APPLY TO AFFECTED AREAS)
  11. SYMBICORT [Concomitant]
     Active Substance: BUDESONIDE\FORMOTEROL FUMARATE DIHYDRATE
     Indication: CHRONIC OBSTRUCTIVE PULMONARY DISEASE
     Dosage: 2 DF, 2X/DAY ((BUDESONIDE: 160MCG/ FORMOTEROL FUMARATE: 4.5 MCG)/ACT)

REACTIONS (4)
  - Irritability [Not Recovered/Not Resolved]
  - Intentional product misuse [Unknown]
  - Depression [Not Recovered/Not Resolved]
  - Withdrawal syndrome [Not Recovered/Not Resolved]

NARRATIVE: CASE EVENT DATE: 201807
